FAERS Safety Report 4957264-5 (Version None)
Quarter: 2006Q1

REPORT INFORMATION
  Report Type: 
  Country: None (occurrence: None)
  Receive Date: 20060323
  Receipt Date: 20060308
  Transmission Date: 20060701
  Serious: Yes (Other)
  Sender: FDA-Public Use
  Company Number: US200603002119

PATIENT
  Age: 13 Year
  Sex: Male
  Weight: 59 kg

DRUGS (3)
  1. STRATTERA [Suspect]
     Indication: OPPOSITIONAL DEFIANT DISORDER
     Dosage: 80 MG, EACH MORNING
     Dates: start: 20041001
  2. RISPERIDONE [Concomitant]
  3. INDERAL ^WYETH-AYERST^  (PROPANOLOL HYDROCHLORIDE) [Concomitant]

REACTIONS (8)
  - ABNORMAL BEHAVIOUR [None]
  - AGGRESSION [None]
  - AGITATION [None]
  - DEPRESSIVE SYMPTOM [None]
  - DYSARTHRIA [None]
  - IRRITABILITY [None]
  - MYDRIASIS [None]
  - OCULAR HYPERAEMIA [None]
